FAERS Safety Report 12581974 (Version 1)
Quarter: 2016Q3

REPORT INFORMATION
  Report Type: Report from Study
  Country: US (occurrence: US)
  Receive Date: 20160722
  Receipt Date: 20160722
  Transmission Date: 20161109
  Serious: Yes (Other)
  Sender: FDA-Public Use
  Company Number: US-ROCHE-1797409

PATIENT

DRUGS (3)
  1. 5-FLUOROURACIL [Suspect]
     Active Substance: FLUOROURACIL
     Indication: CERVIX CARCINOMA
     Dosage: ON DAYS 1-4 EVERY 3 WEEKS.
     Route: 042
  2. CISPLATIN. [Suspect]
     Active Substance: CISPLATIN
     Indication: CERVIX CARCINOMA
     Route: 065
  3. BEVACIZUMAB [Suspect]
     Active Substance: BEVACIZUMAB
     Indication: CERVIX CARCINOMA
     Route: 042

REACTIONS (10)
  - Gastrointestinal disorder [Unknown]
  - Urogenital fistula [Unknown]
  - Urogenital disorder [Unknown]
  - Haematuria [Unknown]
  - Reduced bladder capacity [Unknown]
  - Skin disorder [Unknown]
  - Skin exfoliation [Unknown]
  - Skin ulcer [Unknown]
  - Cystitis [Unknown]
  - Ureteric stenosis [Unknown]
